FAERS Safety Report 5027337-X (Version None)
Quarter: 2006Q2

REPORT INFORMATION
  Report Type: 
  Country: None (occurrence: None)
  Receive Date: 20060612
  Receipt Date: 20060530
  Transmission Date: 20061013
  Serious: Yes (Other)
  Sender: FDA-Public Use
  Company Number: S06-USA-00488-01

PATIENT
  Age: 32 Year
  Sex: Male

DRUGS (9)
  1. CITALOPRAM [Suspect]
     Indication: ANXIETY
     Dosage: 20 MG QD PO
     Route: 048
     Dates: start: 20041101, end: 20050201
  2. CITALOPRAM [Suspect]
     Indication: INSOMNIA
     Dosage: 20 MG QD PO
     Route: 048
     Dates: start: 20041101, end: 20050201
  3. CITALOPRAM [Suspect]
     Indication: ANXIETY
     Dosage: 20 MG QD PO
     Route: 048
  4. CITALOPRAM [Suspect]
     Indication: INSOMNIA
     Dosage: 20 MG QD PO
     Route: 048
  5. CITALOPRAM [Suspect]
     Indication: ANXIETY
     Dosage: 10 MG QD PO
     Route: 048
     Dates: start: 20050801, end: 20050801
  6. CITALOPRAM [Suspect]
     Indication: INSOMNIA
     Dosage: 10 MG QD PO
     Route: 048
     Dates: start: 20050801, end: 20050801
  7. CITALOPRAM [Suspect]
     Indication: ANXIETY
     Dosage: 5 MG QD PO
     Route: 048
     Dates: start: 20050801, end: 20050801
  8. CITALOPRAM [Suspect]
     Indication: INSOMNIA
     Dosage: 5 MG QD PO
     Route: 048
     Dates: start: 20050801, end: 20050801
  9. ZOLOFT [Concomitant]

REACTIONS (11)
  - ABNORMAL DREAMS [None]
  - AGITATION [None]
  - DEPRESSION [None]
  - DRUG INEFFECTIVE [None]
  - DRUG WITHDRAWAL SYNDROME [None]
  - HOMICIDAL IDEATION [None]
  - IMPAIRED WORK ABILITY [None]
  - MARITAL PROBLEM [None]
  - OBSESSIVE-COMPULSIVE DISORDER [None]
  - PAIN [None]
  - SUICIDAL IDEATION [None]
